FAERS Safety Report 8472780-X (Version None)
Quarter: 2012Q2

REPORT INFORMATION
  Report Type: 
  Country: None (occurrence: None)
  Receive Date: 20120627
  Receipt Date: 20120614
  Transmission Date: 20120825
  Serious: Yes (Death)
  Sender: FDA-Public Use
  Company Number: JP-FRI-1000036599

PATIENT
  Age: 66 Year
  Sex: Female

DRUGS (4)
  1. NESINA [Concomitant]
     Indication: DIABETES MELLITUS
     Route: 048
  2. PROMAZINE HYDROCHLORIDE [Concomitant]
     Route: 048
  3. LANSOPRAZOLE [Concomitant]
     Route: 048
  4. LEXAPRO [Suspect]
     Indication: MAJOR DEPRESSION
     Dosage: 10 MG
     Route: 048
     Dates: start: 20120322, end: 20120501

REACTIONS (1)
  - DEATH [None]
